FAERS Safety Report 6134207-2 (Version None)
Quarter: 2009Q1

REPORT INFORMATION
  Report Type: 
  Country: None (occurrence: None)
  Receive Date: 20090325
  Receipt Date: 20090308
  Transmission Date: 20090719
  Serious: Yes (Hospitalization, Other)
  Sender: FDA-Public Use
  Company Number: 2005S1001260

PATIENT
  Age: 72 Year
  Sex: Male
  Weight: 77.1115 kg

DRUGS (10)
  1. PHOSPHOSODA GINGER LEMON [Suspect]
     Indication: COLONOSCOPY
     Dosage: 90 ML; TOTAL; PO
     Route: 048
     Dates: start: 20041013, end: 20041013
  2. VERAPAMIL [Concomitant]
  3. ALTACE [Concomitant]
  4. HYTRIN [Concomitant]
  5. SIMVASTATIN [Concomitant]
  6. GLYBURIDE [Concomitant]
  7. PAXIL [Concomitant]
  8. ABILIFY [Concomitant]
  9. LEXAPRO [Concomitant]
  10. SEROQUEL [Concomitant]

REACTIONS (9)
  - ANAEMIA [None]
  - ARTERIOSCLEROSIS [None]
  - DEPRESSION [None]
  - DIALYSIS [None]
  - DYSPNOEA [None]
  - NEPHROCALCINOSIS [None]
  - NEPHROPATHY [None]
  - RENAL FAILURE ACUTE [None]
  - RENAL FAILURE CHRONIC [None]
